FAERS Safety Report 6388568-X (Version None)
Quarter: 2009Q3

REPORT INFORMATION
  Report Type: 
  Country: None (occurrence: None)
  Receive Date: 20090930
  Receipt Date: 20090703
  Transmission Date: 20100115
  Serious: Yes (Hospitalization)
  Sender: FDA-Public Use
  Company Number: OMPQ-NO-0909S-0776

PATIENT
  Age: 63 Year
  Sex: Female

DRUGS (6)
  1. OMNIPAQUE 300 [Suspect]
     Indication: DRUG USE FOR UNKNOWN INDICATION
     Dosage: 80 ML, SINGLE DOSE, I.V.
     Route: 042
     Dates: start: 20090508, end: 20090508
  2. GLUCOPHAGE [Concomitant]
  3. DIOVAN COMP [Concomitant]
  4. ALBYL-E [Concomitant]
  5. LEVOTHYROXINE SODIUM [Concomitant]
  6. AMLODIPIN (NORVASC) [Concomitant]

REACTIONS (1)
  - PUSTULAR PSORIASIS [None]
